FAERS Safety Report 9392545 (Version 1)
Quarter: 2013Q3

REPORT INFORMATION
  Report Type: Spontaneous
  Country: US (occurrence: None)
  Receive Date: 20130708
  Receipt Date: 20130708
  Transmission Date: 20140515
  Serious: No
  Sender: FDA-Public Use
  Company Number: None

PATIENT
  Age: 72 Year
  Sex: Female

DRUGS (4)
  1. PROLIA [Suspect]
     Indication: OSTEOPOROSIS
     Dosage: INJECTION, ONE
     Dates: start: 20120615, end: 20121215
  2. FOSAMAX [Concomitant]
  3. OSTEOPEDIA [Concomitant]
  4. BONIVA [Concomitant]

REACTIONS (3)
  - Hip fracture [None]
  - Femur fracture [None]
  - Fall [None]
